FAERS Safety Report 14755670 (Version 2)
Quarter: 2023Q2

REPORT INFORMATION
  Report Type: Spontaneous
  Country: US (occurrence: US)
  Receive Date: 20180413
  Receipt Date: 20230412
  Transmission Date: 20230721
  Serious: No
  Sender: FDA-Public Use
  Company Number: US-BAYER-2018-070226

PATIENT
  Sex: Female

DRUGS (1)
  1. BETASERON [Suspect]
     Active Substance: INTERFERON BETA-1B
     Indication: Multiple sclerosis
     Dosage: 0.25 MG, QOD
     Route: 058
     Dates: start: 20140528

REACTIONS (3)
  - Fatigue [None]
  - Asthenia [None]
  - Product dose omission issue [None]
